FAERS Safety Report 19371574 (Version 3)
Quarter: 2022Q2

REPORT INFORMATION
  Report Type: Report from Study
  Country: CO (occurrence: CO)
  Receive Date: 20210603
  Receipt Date: 20220420
  Transmission Date: 20220721
  Serious: Yes (Other)
  Sender: FDA-Public Use
  Company Number: CO-NOVARTISPH-NVSC2021CO098900

PATIENT
  Sex: Female
  Weight: 58 kg

DRUGS (6)
  1. KISQALI [Suspect]
     Active Substance: RIBOCICLIB
     Indication: Breast cancer metastatic
     Dosage: 150 MG, QD (EVERY 24 HOURS), (13 MONTHS AGO)
     Route: 048
  2. KISQALI [Suspect]
     Active Substance: RIBOCICLIB
     Dosage: 100 MG, QD (EVERY 24 HOURS)
     Route: 048
     Dates: start: 20210501
  3. KISQALI [Suspect]
     Active Substance: RIBOCICLIB
     Dosage: 600 MG, QD (SINCE 18 MONTHS AGO)
     Route: 048
  4. KISQALI [Suspect]
     Active Substance: RIBOCICLIB
     Dosage: 400 MG, QD
     Route: 048
  5. FULVESTRANT [Suspect]
     Active Substance: FULVESTRANT
     Indication: Breast cancer
     Dosage: 250 MG, QMO (SINCE 18 MONTHS AGO)
     Route: 030
  6. CALCIUM [Concomitant]
     Active Substance: CALCIUM
     Indication: Bone demineralisation
     Dosage: 4 MG, QMO
     Route: 042

REACTIONS (8)
  - Metastasis [Unknown]
  - Scan abdomen abnormal [Unknown]
  - Alopecia [Unknown]
  - Pruritus [Unknown]
  - Oral pain [Unknown]
  - Platelet count decreased [Unknown]
  - Off label use [Unknown]
  - Drug ineffective [Unknown]
